FAERS Safety Report 13698317 (Version 2)
Quarter: 2017Q3

REPORT INFORMATION
  Report Type: Report from Study
  Country: IL (occurrence: IL)
  Receive Date: 20170628
  Receipt Date: 20170705
  Transmission Date: 20171127
  Serious: Yes (Hospitalization, Other)
  Sender: FDA-Public Use
  Company Number: IL-AMGEN-301623

PATIENT
  Age: 38 Year
  Sex: Female
  Weight: 70 kg

DRUGS (8)
  1. PREDNISOLONE. [Concomitant]
     Active Substance: PREDNISOLONE
     Dosage: UNK
     Dates: start: 19960327
  2. RANITIDINE HYDROCHLORIDE. [Concomitant]
     Active Substance: RANITIDINE HYDROCHLORIDE
     Dosage: 150 MG, QD
     Route: 048
     Dates: start: 19960328
  3. SUCRALFATE. [Concomitant]
     Active Substance: SUCRALFATE
     Dosage: 1 G, QID
     Route: 048
     Dates: start: 19960331
  4. TRIMETHOPRIM + SULFAMETHOXAZOLE [Concomitant]
     Active Substance: SULFAMETHOXAZOLE\TRIMETHOPRIM
     Dosage: 800 G, QID
     Route: 048
     Dates: start: 19960331
  5. LEVOTHYROXINE SODIUM. [Concomitant]
     Active Substance: LEVOTHYROXINE SODIUM
     Dosage: 100 MG, 3 TIMES/WK
     Route: 048
  6. FILGRASTIM [Suspect]
     Active Substance: FILGRASTIM
     Indication: CHRONIC MYELOID LEUKAEMIA
     Dosage: UNK
     Route: 065
     Dates: start: 19960314, end: 19960326
  7. CICLOSPORIN [Concomitant]
     Active Substance: CYCLOSPORINE
     Dosage: 150 MG, BID
     Route: 048
     Dates: start: 19960327
  8. ACICLOVIR [Concomitant]
     Active Substance: ACYCLOVIR
     Dosage: 100 MG, UNK
     Route: 048
     Dates: start: 19960328

REACTIONS (5)
  - Headache [Unknown]
  - Hypertension [Unknown]
  - Haematuria [Unknown]
  - Fatigue [Unknown]
  - Graft versus host disease [Recovered/Resolved]

NARRATIVE: CASE EVENT DATE: 19960407
